FAERS Safety Report 6635110-1 (Version None)
Quarter: 2010Q1

REPORT INFORMATION
  Report Type: 
  Country: None (occurrence: None)
  Receive Date: 20100315
  Receipt Date: 20100303
  Transmission Date: 20100710
  Serious: Yes (Hospitalization, Other)
  Sender: FDA-Public Use
  Company Number: PHEH2010US02859

PATIENT
  Sex: Female

DRUGS (1)
  1. GLEEVEC [Suspect]
     Indication: GASTRIC CANCER
     Dosage: 300 MG, QD
     Dates: start: 20090201

REACTIONS (4)
  - CELLULITIS [None]
  - GASTRECTOMY [None]
  - HERNIA REPAIR [None]
  - WOUND TREATMENT [None]
